FAERS Safety Report 9980687 (Version 2)
Quarter: 2014Q1

REPORT INFORMATION
  Report Type: Spontaneous
  Country: US (occurrence: JP)
  Receive Date: 20140307
  Receipt Date: 20140307
  Transmission Date: 20141002
  Serious: Yes (Other)
  Sender: FDA-Public Use
  Company Number: 2014SP001150

PATIENT
  Age: 43 Year
  Sex: Female

DRUGS (4)
  1. CISPLATIN [Suspect]
     Indication: GASTRIC CANCER STAGE IV
  2. GIMERACIL [Suspect]
     Indication: GASTRIC CANCER STAGE IV
  3. OTERACIL POTASSIUM [Suspect]
     Indication: GASTRIC CANCER STAGE IV
  4. TEGAFUR [Suspect]
     Indication: GASTRIC CANCER STAGE IV

REACTIONS (6)
  - Trousseau^s syndrome [Recovered/Resolved]
  - Intracranial venous sinus thrombosis [Recovered/Resolved]
  - Cerebral haemorrhage [Recovered/Resolved]
  - Hemiplegia [Recovered/Resolved]
  - Headache [Recovered/Resolved]
  - Vomiting [Recovered/Resolved]
